FAERS Safety Report 4561548-2 (Version None)
Quarter: 2005Q1

REPORT INFORMATION
  Report Type: 
  Country: None (occurrence: None)
  Receive Date: 20050121
  Receipt Date: 20041214
  Transmission Date: 20050727
  Serious: Yes (Death, Life-Threatening)
  Sender: FDA-Public Use
  Company Number: US_0411107788

PATIENT
  Sex: Male
  Weight: 114 kg

DRUGS (5)
  1. ZYPREXA [Suspect]
     Indication: SCHIZOPHRENIA
     Dosage: 10 MG/2 DAY
     Dates: start: 20020314, end: 20030201
  2. COGENTIN (BENZATROPINE BESILATE) [Concomitant]
  3. HALDOL (HALOPERIDOL DECAONATE) [Concomitant]
  4. DETROL (TOLTERODINE) [Concomitant]
  5. DITROPAN XL [Concomitant]

REACTIONS (15)
  - ANOREXIA [None]
  - BLOOD GLUCOSE INCREASED [None]
  - BODY TEMPERATURE INCREASED [None]
  - CIRCULATORY COLLAPSE [None]
  - COMA [None]
  - CONSTIPATION [None]
  - ENERGY INCREASED [None]
  - FEELING ABNORMAL [None]
  - HEPATIC STEATOSIS [None]
  - HYPERGLYCAEMIA [None]
  - INSOMNIA [None]
  - MOANING [None]
  - POLLAKIURIA [None]
  - TREATMENT NONCOMPLIANCE [None]
  - WEIGHT INCREASED [None]
